FAERS Safety Report 17101569 (Version 5)
Quarter: 2020Q1

REPORT INFORMATION
  Report Type: Report from Study
  Country: DK (occurrence: DK)
  Receive Date: 20191202
  Receipt Date: 20200220
  Transmission Date: 20200409
  Serious: Yes (Hospitalization)
  Sender: FDA-Public Use
  Company Number: DK-BAYER-2019-209880

PATIENT
  Sex: Female
  Weight: 45 kg

DRUGS (20)
  1. GANGIDEN [Concomitant]
     Indication: HEPATIC FAILURE
     Dosage: 2 PACKAGE, DAILY
     Dates: start: 20191111
  2. MORPHINE [Concomitant]
     Active Substance: MORPHINE
     Indication: PAIN
     Dosage: 10 MG, BID
     Dates: start: 20191112
  3. TAZOCIN [Concomitant]
     Active Substance: PIPERACILLIN SODIUM\TAZOBACTAM SODIUM
     Indication: HYPOTHERMIA
     Dosage: 4 G, QID
     Dates: start: 20191227, end: 20191230
  4. STIVARGA [Suspect]
     Active Substance: REGORAFENIB
     Indication: HEPATOCELLULAR CARCINOMA
     Dosage: DAILY DOSE 80 MG
     Dates: start: 20191112
  5. MORPHINE [Concomitant]
     Active Substance: MORPHINE
     Indication: PAIN
     Dosage: 5 MG, PRN
     Dates: start: 20190710
  6. SURLID [Concomitant]
     Active Substance: ROXITHROMYCIN
     Indication: PNEUMONITIS
     Dosage: 150 MG, BID
     Dates: start: 20191212, end: 20191215
  7. NATRIUMCHLORIDE [Concomitant]
     Active Substance: SODIUM CHLORIDE
     Indication: HEPATIC FAILURE
     Dosage: 1 L, DAILY
     Dates: start: 20191107, end: 20191109
  8. TAZOCIN [Concomitant]
     Active Substance: PIPERACILLIN SODIUM\TAZOBACTAM SODIUM
     Indication: PNEUMONITIS
     Dosage: 4 G, QID
     Dates: start: 20191216
  9. FURIX [CEFUROXIME] [Concomitant]
     Active Substance: CEFUROXIME
     Indication: ASCITES
     Dosage: 40 MG, BID
     Dates: start: 20191230, end: 20200114
  10. GLUCOSE [Concomitant]
     Active Substance: DEXTROSE
     Indication: HEPATIC FAILURE
     Dosage: 1 L, DAILY
     Dates: start: 20191108, end: 20191109
  11. ALBUMIN HUMAN [Concomitant]
     Active Substance: ALBUMIN HUMAN
     Indication: ABDOMINAL DISCOMFORT
     Dosage: DAILY DOSE 1 L
     Dates: start: 20191230, end: 20191231
  12. LAKTULOSE [Concomitant]
     Indication: HEPATIC FAILURE
     Dosage: 1 PACKAGE TWICE PER DAY
     Dates: start: 20191107, end: 20191111
  13. STIVARGA [Suspect]
     Active Substance: REGORAFENIB
     Indication: HEPATOCELLULAR CARCINOMA
     Dosage: DAILY DOSE 80 MG
     Dates: start: 20191023
  14. STIVARGA [Suspect]
     Active Substance: REGORAFENIB
     Indication: HEPATOCELLULAR CARCINOMA
     Dosage: DAILY DOSE 120 MG
     Dates: start: 20191029, end: 20191107
  15. STIVARGA [Suspect]
     Active Substance: REGORAFENIB
     Indication: HEPATOCELLULAR CARCINOMA
     Dosage: DAILY DOSE 80 MG
     Dates: start: 20191119, end: 20191218
  16. STIVARGA [Suspect]
     Active Substance: REGORAFENIB
     Indication: HEPATOCELLULAR CARCINOMA
     Dosage: UNK
     Dates: end: 20191227
  17. PARACETAMOL [Concomitant]
     Active Substance: ACETAMINOPHEN
     Indication: PAIN
     Dosage: 6000 MG, PRN
     Dates: start: 20190304
  18. CEFUROXIM [CEFUROXIME] [Concomitant]
     Active Substance: CEFUROXIME
     Indication: PNEUMONIA
     Dosage: 750 MG (FOUR TIMES PER DAY)
     Dates: start: 20191216, end: 20191223
  19. NATRIUMCHLORIDE [Concomitant]
     Active Substance: SODIUM CHLORIDE
     Indication: HEPATIC FAILURE
     Dosage: 1 L, BID
     Dates: start: 20191110, end: 20191111
  20. RESONIUM [Concomitant]
     Active Substance: SODIUM POLYSTYRENE SULFONATE
     Indication: HYPERKALAEMIA
     Dosage: 15 G, TID
     Dates: start: 20191226, end: 20191227

REACTIONS (6)
  - Dehydration [Recovered/Resolved]
  - Hepatic failure [Recovered/Resolved]
  - Pneumonia [Recovered/Resolved]
  - Abdominal rigidity [Recovered/Resolved]
  - Ascites [Recovered/Resolved]
  - Hyperkalaemia [Recovered/Resolved]

NARRATIVE: CASE EVENT DATE: 20191106
